FAERS Safety Report 9595261 (Version 2)
Quarter: 2013Q4

REPORT INFORMATION
  Report Type: Spontaneous
  Country: US (occurrence: None)
  Receive Date: 20131002
  Receipt Date: 20131008
  Transmission Date: 20140711
  Serious: Yes (Life-Threatening, Hospitalization, Other)
  Sender: FDA-Public Use
  Company Number: AUR-APL-2013-08055

PATIENT
  Age: 17 Year
  Sex: Male
  Weight: 62 kg

DRUGS (2)
  1. LAMOTRIGINE [Suspect]
     Indication: BIPOLAR II DISORDER
     Dosage: 50 MG (25 MG, 2 IN 1 D), UNKNOWN
  2. LAMOTRIGINE [Suspect]
     Indication: POST-TRAUMATIC STRESS DISORDER
     Dosage: 50 MG (25 MG, 2 IN 1 D), UNKNOWN

REACTIONS (10)
  - Drug reaction with eosinophilia and systemic symptoms [None]
  - Influenza like illness [None]
  - Hepatic enzyme increased [None]
  - Pyrexia [None]
  - Abdominal discomfort [None]
  - Fatigue [None]
  - Lymphadenopathy [None]
  - Cholelithiasis [None]
  - Splenomegaly [None]
  - Cholangitis [None]
